FAERS Safety Report 8454699-3 (Version None)
Quarter: 2012Q2

REPORT INFORMATION
  Report Type: 
  Country: None (occurrence: None)
  Receive Date: 20120615
  Receipt Date: 20120615
  Transmission Date: 20120825
  Serious: Yes (Other)
  Sender: FDA-Public Use
  Company Number: None

PATIENT
  Sex: Male

DRUGS (2)
  1. VOTRIENT [Suspect]
     Indication: SARCOMA
     Dosage: 800 MG DAILY ORAL
     Route: 048
     Dates: start: 20120411
  2. VOTRIENT [Suspect]
     Indication: SARCOMA
     Dosage: 800 MG DAILY ORAL
     Route: 048
     Dates: start: 20120524

REACTIONS (2)
  - DRUG INEFFECTIVE [None]
  - DISEASE PROGRESSION [None]
